FAERS Safety Report 17048094 (Version 7)
Quarter: 2021Q1

REPORT INFORMATION
  Report Type: Spontaneous
  Country: GB (occurrence: GB)
  Receive Date: 20191119
  Receipt Date: 20210118
  Transmission Date: 20210419
  Serious: Yes (Other)
  Sender: FDA-Public Use
  Company Number: GB-HRARD-201900891

PATIENT
  Age: 37 Year
  Sex: Male
  Weight: 137 kg

DRUGS (22)
  1. LYSODREN [Suspect]
     Active Substance: MITOTANE
     Indication: ADRENOCORTICAL CARCINOMA
     Dosage: 1800 MG DAILY
     Route: 048
     Dates: start: 20191102, end: 20191104
  2. LYSODREN [Suspect]
     Active Substance: MITOTANE
     Indication: ADRENOCORTICAL CARCINOMA
     Route: 048
     Dates: start: 20191230, end: 20200124
  3. SHORTEC [Concomitant]
     Active Substance: OXYCODONE HYDROCHLORIDE
     Indication: PRODUCT USED FOR UNKNOWN INDICATION
     Dosage: 5 MG AS NECESSARY
  4. LOPERAMIDE [Concomitant]
     Active Substance: LOPERAMIDE
     Indication: PRODUCT USED FOR UNKNOWN INDICATION
     Dosage: AS NEEDED
  5. PARACETAMOL [Concomitant]
     Active Substance: ACETAMINOPHEN
     Indication: PRODUCT USED FOR UNKNOWN INDICATION
     Dosage: AS NEEDED
  6. OMEPRAZOLE. [Concomitant]
     Active Substance: OMEPRAZOLE
     Indication: PRODUCT USED FOR UNKNOWN INDICATION
  7. RAMIPRIL. [Concomitant]
     Active Substance: RAMIPRIL
     Indication: PRODUCT USED FOR UNKNOWN INDICATION
     Dosage: CUMULATIVE DOSE TO FIRST REACTION: 32.5 MG
     Dates: start: 20191010
  8. CYCLIZINE [Concomitant]
     Active Substance: CYCLIZINE
     Indication: PRODUCT USED FOR UNKNOWN INDICATION
     Dosage: AS NEEDED
  9. SALBUTAMOL [Concomitant]
     Active Substance: ALBUTEROL
     Indication: PRODUCT USED FOR UNKNOWN INDICATION
     Dosage: AS NEEDED, INHALER 1?2 PUFFS UP TO FOUR TIMES DAILY
     Route: 055
  10. SHORTEC [Concomitant]
     Active Substance: OXYCODONE HYDROCHLORIDE
     Indication: PRODUCT USED FOR UNKNOWN INDICATION
     Dosage: 5 MG EVERY 2?4 HOURS
  11. AMLODIPINE [Concomitant]
     Active Substance: AMLODIPINE BESYLATE
     Indication: PRODUCT USED FOR UNKNOWN INDICATION
  12. LYSODREN [Suspect]
     Active Substance: MITOTANE
     Indication: ADRENOCORTICAL CARCINOMA
     Dosage: LEVEL DEPENDENT THROUGH TREATMENT
     Route: 048
     Dates: start: 20181201
  13. LYSODREN [Suspect]
     Active Substance: MITOTANE
     Indication: ADRENOCORTICAL CARCINOMA
     Dosage: 8500 MG DAILY
     Route: 048
     Dates: start: 20191007, end: 20191023
  14. LEVOTHYROXINE. [Concomitant]
     Active Substance: LEVOTHYROXINE
     Indication: PRODUCT USED FOR UNKNOWN INDICATION
     Dosage: CUMULATIVE DOSE TO FIRST REACTION: 8300 ?G
     Dates: start: 20190801
  15. GRANISETRON [Concomitant]
     Active Substance: GRANISETRON
     Indication: PRODUCT USED FOR UNKNOWN INDICATION
     Dosage: AS NEEDED
  16. PARACETAMOL [Concomitant]
     Active Substance: ACETAMINOPHEN
     Indication: PRODUCT USED FOR UNKNOWN INDICATION
     Dosage: AS NEEDED
  17. HYDROCORTISONE. [Concomitant]
     Active Substance: HYDROCORTISONE
     Indication: PRODUCT USED FOR UNKNOWN INDICATION
     Dosage: 20 MG MORNING, 10 MG AT 12.00 AND 10 MG AT 06.00 PM
  18. LONGTEC [Concomitant]
     Active Substance: OXYCODONE HYDROCHLORIDE
  19. CYCLIZINE [Concomitant]
     Active Substance: CYCLIZINE
     Indication: PRODUCT USED FOR UNKNOWN INDICATION
  20. TADALAFIL. [Concomitant]
     Active Substance: TADALAFIL
     Indication: PRODUCT USED FOR UNKNOWN INDICATION
     Dosage: 10 MG AS DIRECTED
  21. LONGTEC [Concomitant]
     Active Substance: OXYCODONE HYDROCHLORIDE
  22. OMEPRAZOLE. [Concomitant]
     Active Substance: OMEPRAZOLE
     Indication: PRODUCT USED FOR UNKNOWN INDICATION

REACTIONS (8)
  - Off label use [Unknown]
  - Gastrointestinal disorder [Unknown]
  - Pyoderma gangrenosum [Recovered/Resolved]
  - Nausea [Unknown]
  - Hepatic function abnormal [Unknown]
  - Fatigue [Unknown]
  - Hypothyroidism [Recovered/Resolved]
  - Paraesthesia [Unknown]

NARRATIVE: CASE EVENT DATE: 201812
